FAERS Safety Report 5988881-1 (Version None)
Quarter: 2008Q4

REPORT INFORMATION
  Report Type: 
  Country: None (occurrence: None)
  Receive Date: 20081204
  Receipt Date: 20081201
  Transmission Date: 20090506
  Serious: Yes (Hospitalization, Other)
  Sender: FDA-Public Use
  Company Number: 2008SP024319

PATIENT
  Age: 74 Year
  Sex: Female
  Weight: 73 kg

DRUGS (2)
  1. VIRAFERONPEG [Suspect]
     Indication: HEPATITIS C
     Dosage: 108 MCG
     Dates: start: 20080507
  2. REBETOL [Suspect]
     Indication: HEPATITIS C
     Dosage: 1000 MG
     Dates: start: 20080101

REACTIONS (7)
  - ALANINE AMINOTRANSFERASE INCREASED [None]
  - ASPARTATE AMINOTRANSFERASE INCREASED [None]
  - DYSSTASIA [None]
  - FATIGUE [None]
  - HAEMOGLOBIN DECREASED [None]
  - PARALYSIS [None]
  - VOMITING [None]
